FAERS Safety Report 9879603 (Version 2)
Quarter: 2014Q1

REPORT INFORMATION
  Report Type: Report from Study
  Country: JP (occurrence: JP)
  Receive Date: 20140206
  Receipt Date: 20140311
  Transmission Date: 20141002
  Serious: Yes (Hospitalization, Other)
  Sender: FDA-Public Use
  Company Number: JP-TAKEDA-2014TJP001160

PATIENT
  Age: 72 Year
  Sex: Male
  Weight: 73.2 kg

DRUGS (6)
  1. ALOGLIPTIN [Suspect]
     Indication: TYPE 2 DIABETES MELLITUS
     Dosage: 12.5 MG, QD
     Route: 048
     Dates: start: 20120901, end: 20130624
  2. MEDET [Concomitant]
     Indication: TYPE 2 DIABETES MELLITUS
     Dosage: 750 MG, 1 DAYS
     Route: 048
     Dates: end: 20130624
  3. BAYASPIRIN [Concomitant]
     Dosage: 100 MG, 1 DAYS
     Route: 048
     Dates: end: 20130624
  4. FEBURIC [Concomitant]
     Dosage: 10 MG, 1 DAYS
     Route: 048
     Dates: start: 20120924, end: 20130624
  5. NEUQUINON [Concomitant]
     Dosage: 20 MG, 1 DAYS
     Route: 048
     Dates: end: 20130624
  6. URSO                               /00465701/ [Concomitant]
     Dosage: 200 MG, 1 DAYS
     Route: 048
     Dates: end: 20130624

REACTIONS (1)
  - Cardiac failure [Recovered/Resolved]
